FAERS Safety Report 6170837-X (Version None)
Quarter: 2009Q2

REPORT INFORMATION
  Report Type: 
  Country: None (occurrence: None)
  Receive Date: 20090427
  Receipt Date: 20090417
  Transmission Date: 20091009
  Serious: Yes (Disabling)
  Sender: FDA-Public Use
  Company Number: 248925

PATIENT
  Sex: Female

DRUGS (1)
  1. MARCAINE [Suspect]
     Indication: DRUG USE FOR UNKNOWN INDICATION
     Dosage: INJECTION
     Dates: start: 20050815

REACTIONS (3)
  - MUSCULOSKELETAL PAIN [None]
  - OSTEOARTHRITIS [None]
  - SYNOVITIS [None]
